FAERS Safety Report 5465558-2 (Version None)
Quarter: 2007Q3

REPORT INFORMATION
  Report Type: 
  Country: None (occurrence: None)
  Receive Date: 20070924
  Receipt Date: 19980716
  Transmission Date: 20080115
  Serious: Yes (Hospitalization)
  Sender: FDA-Public Use
  Company Number: FR-PFIZER INC-2006121909

PATIENT
  Sex: Female

DRUGS (8)
  1. IRINOTECAN HCL [Suspect]
     Indication: NEOPLASM MALIGNANT
     Dosage: DAILY DOSE:170MG
     Route: 042
     Dates: start: 19980703, end: 19980703
  2. FLUOROURACIL [Suspect]
     Indication: NEOPLASM MALIGNANT
     Route: 042
     Dates: start: 19980703, end: 19980704
  3. FOLINIC ACID [Suspect]
     Indication: NEOPLASM MALIGNANT
     Route: 042
  4. OXALIPLATIN [Suspect]
     Indication: NEOPLASM MALIGNANT
     Dates: start: 19980703, end: 19980703
  5. DIFFU K [Concomitant]
  6. OMEPRAZOLE [Concomitant]
  7. MORPHINE [Concomitant]
  8. SOLU-MEDROL [Concomitant]

REACTIONS (1)
  - HEMIPARESIS [None]
